FAERS Safety Report 18448376 (Version 2)
Quarter: 2020Q4

REPORT INFORMATION
  Report Type: Spontaneous
  Country: US (occurrence: US)
  Receive Date: 20201030
  Receipt Date: 20201109
  Transmission Date: 20210114
  Serious: Yes (Hospitalization)
  Sender: FDA-Public Use
  Company Number: US-TEVA-2020-US-1843243

PATIENT

DRUGS (1)
  1. ALBUTEROL SULFATE HFA TEVA [Suspect]
     Active Substance: ALBUTEROL SULFATE
     Route: 055

REACTIONS (3)
  - Dyspnoea [Unknown]
  - Asthma [Unknown]
  - Device delivery system issue [Unknown]
